FAERS Safety Report 13726461 (Version 1)
Quarter: 2017Q3

REPORT INFORMATION
  Report Type: Report from Study
  Country: JP (occurrence: JP)
  Receive Date: 20170707
  Receipt Date: 20170707
  Transmission Date: 20171127
  Serious: Yes (Other)
  Sender: FDA-Public Use
  Company Number: JP-BAYER-2017-126278

PATIENT
  Age: 57 Year
  Sex: Male

DRUGS (1)
  1. LOW-DOSE ASPIRIN [Suspect]
     Active Substance: ASPIRIN
     Route: 048

REACTIONS (1)
  - Duodenal ulcer [None]
